FAERS Safety Report 7738845-2 (Version None)
Quarter: 2011Q3

REPORT INFORMATION
  Report Type: 
  Country: None (occurrence: None)
  Receive Date: 20110909
  Receipt Date: 20110831
  Transmission Date: 20111222
  Serious: Yes (Hospitalization)
  Sender: FDA-Public Use
  Company Number: US-BIOGENIDEC-2011BI028814

PATIENT
  Age: 60 Year
  Sex: Female

DRUGS (1)
  1. TYSABRI [Suspect]
     Indication: MULTIPLE SCLEROSIS
     Route: 042
     Dates: start: 20090527

REACTIONS (7)
  - URINARY INCONTINENCE [None]
  - OBSTRUCTIVE UROPATHY [None]
  - MEMORY IMPAIRMENT [None]
  - IRRITABLE BOWEL SYNDROME [None]
  - VOMITING [None]
  - SPINAL OSTEOARTHRITIS [None]
  - SMALL INTESTINAL OBSTRUCTION [None]
